FAERS Safety Report 8050955-1 (Version None)
Quarter: 2012Q1

REPORT INFORMATION
  Report Type: 
  Country: None (occurrence: None)
  Receive Date: 20120117
  Receipt Date: 20120110
  Transmission Date: 20120608
  Serious: Yes (Death, Other)
  Sender: FDA-Public Use
  Company Number: PHHY2012GB002855

PATIENT

DRUGS (3)
  1. RITUXIMAB [Concomitant]
     Indication: GRAFT VERSUS HOST DISEASE
     Dosage: UNK UKN, UNK
  2. MYCOPHENOLATE MOFETIL [Suspect]
     Indication: GRAFT VERSUS HOST DISEASE
     Dosage: UNK UKN, UNK
  3. METHYLPREDNISOLONE [Concomitant]
     Indication: GRAFT VERSUS HOST DISEASE
     Dosage: UNK UKN, UNK

REACTIONS (8)
  - FIBROSIS [None]
  - DRUG RESISTANCE [None]
  - GASTROINTESTINAL HAEMORRHAGE [None]
  - GASTROINTESTINAL ULCER [None]
  - BILE ACID MALABSORPTION [None]
  - INFECTION [None]
  - EXCESSIVE GRANULATION TISSUE [None]
  - COLITIS [None]
